FAERS Safety Report 4309994-6 (Version None)
Quarter: 2004Q1

REPORT INFORMATION
  Report Type: 
  Country: None (occurrence: None)
  Receive Date: 20040301
  Receipt Date: 20040218
  Transmission Date: 20041129
  Serious: Yes (Death, Disabling)
  Sender: FDA-Public Use
  Company Number: FLUV00303003623

PATIENT
  Age: 70 Year
  Sex: Female
  Weight: 45 kg

DRUGS (4)
  1. FLUVOXAMINE MALEATE [Suspect]
     Indication: DEPRESSION
     Dosage: 50 MG DAILY PO
     Route: 048
     Dates: start: 20031203, end: 20031211
  2. MEILAX (ETHYL LOFLAZEPATE) [Suspect]
     Indication: DEPRESSION
     Dosage: 1 MG DAILY PO
     Route: 048
     Dates: start: 20031203, end: 20031211
  3. ZOLPIDEM TARTRATE [Suspect]
     Indication: DEPRESSION
     Dosage: 5 MG DAILY PO
     Route: 048
     Dates: start: 20031203, end: 20031211
  4. DOGMATYL (SULPIRIDE) [Concomitant]

REACTIONS (7)
  - ACUTE RESPIRATORY FAILURE [None]
  - ALANINE AMINOTRANSFERASE INCREASED [None]
  - ASPARTATE AMINOTRANSFERASE INCREASED [None]
  - BLOOD ALKALINE PHOSPHATASE INCREASED [None]
  - BLOOD LACTATE DEHYDROGENASE INCREASED [None]
  - DRUG INEFFECTIVE [None]
  - INTERSTITIAL LUNG DISEASE [None]
